FAERS Safety Report 5941452-5 (Version None)
Quarter: 2008Q4

REPORT INFORMATION
  Report Type: 
  Country: None (occurrence: None)
  Receive Date: 20081031
  Receipt Date: 20081020
  Transmission Date: 20090506
  Serious: Yes (Death, Hospitalization, Other)
  Sender: FDA-Public Use
  Company Number: 100#08#2008-05377

PATIENT
  Age: 25 Year
  Sex: Female

DRUGS (4)
  1. HYDROXYCARBAMIDE (HYDROXYCARBAMIDE) [Suspect]
     Indication: SICKLE CELL ANAEMIA
     Dosage: SEE IMAGE
  2. HYDROXYCARBAMIDE (HYDROXYCARBAMIDE) [Suspect]
     Indication: VASCULAR OCCLUSION
     Dosage: SEE IMAGE
  3. HYDROXYCARBAMIDE (HYDROXYCARBAMIDE) [Suspect]
     Indication: SICKLE CELL ANAEMIA
     Dosage: SEE IMAGE
     Dates: start: 19981101
  4. HYDROXYCARBAMIDE (HYDROXYCARBAMIDE) [Suspect]
     Indication: VASCULAR OCCLUSION
     Dosage: SEE IMAGE
     Dates: start: 19981101

REACTIONS (7)
  - ACQUIRED MITOCHONDRIAL DNA MUTATION [None]
  - ACUTE MYELOID LEUKAEMIA [None]
  - ALANINE AMINOTRANSFERASE INCREASED [None]
  - BRONCHOPULMONARY ASPERGILLOSIS [None]
  - CYTOGENETIC ABNORMALITY [None]
  - HEADACHE [None]
  - PULMONARY HAEMORRHAGE [None]
